FAERS Safety Report 5235072-8 (Version None)
Quarter: 2007Q1

REPORT INFORMATION
  Report Type: 
  Country: None (occurrence: None)
  Receive Date: 20070207
  Receipt Date: 20070122
  Transmission Date: 20070707
  Serious: Yes (Disabling, Other)
  Sender: FDA-Public Use
  Company Number: DSA_29264_2007

PATIENT
  Age: 75 Year
  Sex: Female

DRUGS (4)
  1. ATIVAN [Suspect]
     Indication: INSOMNIA
     Dosage: 1 MG TID PO
     Route: 048
     Dates: start: 20020101, end: 20061101
  2. ATIVAN [Suspect]
     Indication: INSOMNIA
     Dosage: VAR TID PO
     Route: 048
     Dates: start: 20061101
  3. PREDNISONE 50MG TAB [Concomitant]
  4. LISINOPRIL [Concomitant]

REACTIONS (6)
  - ALOPECIA [None]
  - CATARACT [None]
  - DECREASED APPETITE [None]
  - DIZZINESS [None]
  - NAUSEA [None]
  - VISION BLURRED [None]
